FAERS Safety Report 9186564 (Version 1)
Quarter: 2013Q1

REPORT INFORMATION
  Report Type: Spontaneous
  Country: US (occurrence: None)
  Receive Date: 20130325
  Receipt Date: 20130325
  Transmission Date: 20140127
  Serious: Yes (Death)
  Sender: FDA-Public Use
  Company Number: None

PATIENT
  Sex: Female

DRUGS (2)
  1. MIFEPRISTONE [Suspect]
     Indication: ABORTION
     Route: 048
  2. MISOPROSTOL [Suspect]
     Route: 002

REACTIONS (1)
  - Streptococcal sepsis [None]
